FAERS Safety Report 9741922 (Version 1)
Quarter: 2013Q4

REPORT INFORMATION
  Report Type: Report from Study
  Country: CA (occurrence: CA)
  Receive Date: 20131210
  Receipt Date: 20131210
  Transmission Date: 20140711
  Serious: Yes (Other)
  Sender: FDA-Public Use
  Company Number: CA-JNJFOC-20131201356

PATIENT
  Age: 53 Year
  Sex: Male
  Weight: 102 kg

DRUGS (3)
  1. REMICADE [Suspect]
     Indication: ANKYLOSING SPONDYLITIS
     Route: 042
  2. TYLENOL [Concomitant]
     Indication: PREMEDICATION
     Route: 048
  3. FLU VACCINE [Concomitant]
     Route: 065
     Dates: start: 201311

REACTIONS (3)
  - Fall [Recovered/Resolved]
  - Skeletal injury [Recovered/Resolved]
  - Crohn^s disease [Unknown]
